FAERS Safety Report 4981844-4 (Version None)
Quarter: 2006Q2

REPORT INFORMATION
  Report Type: 
  Country: None (occurrence: None)
  Receive Date: 20060421
  Receipt Date: 20060421
  Transmission Date: 20061013
  Serious: Yes (Other)
  Sender: FDA-Public Use
  Company Number: None

PATIENT
  Sex: Male
  Weight: 70.3075 kg

DRUGS (10)
  1. ZOSYN [Suspect]
     Indication: SINUSITIS
     Dosage: 3.375 GM Q 6 H IV
     Route: 042
     Dates: start: 20060417, end: 20060418
  2. MAXIPIME [Suspect]
     Indication: SINUSITIS
     Dosage: 2 GM Q 12 H IV  1 DOSE
     Route: 042
     Dates: start: 20060419
  3. RISPERDAL [Concomitant]
  4. ACYCLOVIR [Concomitant]
  5. ATAZANAVIR [Concomitant]
  6. RITONAVIR [Concomitant]
  7. FTG [Concomitant]
  8. TENOFOVIR [Concomitant]
  9. DAPSONE [Concomitant]
  10. FLUCONAZOLE [Concomitant]

REACTIONS (5)
  - BLISTER [None]
  - PRURITUS [None]
  - RASH [None]
  - RASH PAPULAR [None]
  - VOMITING [None]
